FAERS Safety Report 13184147 (Version 1)
Quarter: 2017Q1

REPORT INFORMATION
  Report Type: Spontaneous
  Country: US (occurrence: US)
  Receive Date: 20170203
  Receipt Date: 20170203
  Transmission Date: 20170428
  Serious: Yes (Other)
  Sender: FDA-Public Use
  Company Number: US-TEVA-736762ACC

PATIENT
  Sex: Female
  Weight: 74.46 kg

DRUGS (1)
  1. PARAGARD T 380A [Suspect]
     Active Substance: COPPER
     Indication: CONTRACEPTION
     Dates: start: 2013

REACTIONS (4)
  - Muscle spasms [Unknown]
  - Device dislocation [Not Recovered/Not Resolved]
  - Back pain [Unknown]
  - Vaginal haemorrhage [Unknown]
